FAERS Safety Report 15358322 (Version 1)
Quarter: 2018Q3

REPORT INFORMATION
  Report Type: Spontaneous
  Country: US (occurrence: US)
  Receive Date: 20180906
  Receipt Date: 20180906
  Transmission Date: 20181010
  Serious: No
  Sender: FDA-Public Use
  Company Number: US-PERRIGO-18US006792

PATIENT
  Sex: Male

DRUGS (2)
  1. EVAMIST [Suspect]
     Active Substance: ESTRADIOL
     Indication: HOT FLUSH
     Dosage: UNKNOWN, UNKNOWN
     Route: 062
  2. LUPRON [Concomitant]
     Active Substance: LEUPROLIDE ACETATE
     Indication: PROSTATE CANCER
     Dosage: UNK
     Route: 065

REACTIONS (1)
  - Off label use [Unknown]
